FAERS Safety Report 5696094-6 (Version None)
Quarter: 2008Q2

REPORT INFORMATION
  Report Type: 
  Country: None (occurrence: None)
  Receive Date: 20080407
  Receipt Date: 20080403
  Transmission Date: 20081010
  Serious: Yes (Hospitalization)
  Sender: FDA-Public Use
  Company Number: B0515326A

PATIENT
  Age: 30 Year
  Sex: Male

DRUGS (4)
  1. CIBLOR [Suspect]
     Indication: NASOPHARYNGITIS
     Route: 048
     Dates: start: 20080211, end: 20080211
  2. DI ANTALVIC [Suspect]
     Indication: NASOPHARYNGITIS
     Route: 048
     Dates: start: 20080211, end: 20080211
  3. ASPEGIC 1000 [Suspect]
     Indication: NASOPHARYNGITIS
     Route: 048
     Dates: start: 20080211, end: 20080211
  4. PREDNISONE [Concomitant]

REACTIONS (3)
  - ANGIOEDEMA [None]
  - GENERALISED ERYTHEMA [None]
  - PRURITUS [None]
